FAERS Safety Report 8923387 (Version 1)
Quarter: 2012Q4

REPORT INFORMATION
  Report Type: 
  Country: US (occurrence: US)
  Receive Date: 20121123
  Receipt Date: 20121123
  Transmission Date: 20130627
  Serious: Yes (Other)
  Sender: FDA-Public Use
  Company Number: US-JNJFOC-20121105402

PATIENT
  Sex: Female

DRUGS (1)
  1. RISPERDAL CONSTA [Suspect]
     Indication: PRODUCT USED FOR UNKNOWN INDICATION
     Route: 030
     Dates: end: 201211

REACTIONS (4)
  - Cardiac failure congestive [Not Recovered/Not Resolved]
  - Deafness [Not Recovered/Not Resolved]
  - Stent placement [Not Recovered/Not Resolved]
  - Injection site pain [Recovered/Resolved]
